FAERS Safety Report 25030008 (Version 1)
Quarter: 2025Q1

REPORT INFORMATION
  Report Type: Spontaneous
  Country: ES (occurrence: ES)
  Receive Date: 20250303
  Receipt Date: 20250303
  Transmission Date: 20250409
  Serious: Yes (Other)
  Sender: ALKEM
  Company Number: ES-ALKEM LABORATORIES LIMITED-ES-ALKEM-2024-24228

PATIENT
  Age: 44 Year
  Sex: Male

DRUGS (4)
  1. LANSOPRAZOLE [Suspect]
     Active Substance: LANSOPRAZOLE
     Indication: Oesophagitis
     Dosage: 30 MILLIGRAM, QD
     Route: 048
  2. LANSOPRAZOLE [Suspect]
     Active Substance: LANSOPRAZOLE
     Indication: Duodenitis
  3. DOMPERIDONE [Concomitant]
     Active Substance: DOMPERIDONE
     Indication: Oesophagitis
     Route: 065
  4. DOMPERIDONE [Concomitant]
     Active Substance: DOMPERIDONE
     Indication: Duodenitis

REACTIONS (1)
  - Cholestatic liver injury [Recovering/Resolving]
